FAERS Safety Report 23428646 (Version 1)
Quarter: 2024Q1

REPORT INFORMATION
  Report Type: Spontaneous
  Country: CA (occurrence: CA)
  Receive Date: 20240122
  Receipt Date: 20240122
  Transmission Date: 20240410
  Serious: Yes (Life-Threatening, Hospitalization, Other)
  Sender: FDA-Public Use
  Company Number: CA-FreseniusKabi-FK202400909

PATIENT
  Age: 59 Year
  Weight: 74 kg

DRUGS (2)
  1. MORPHINE [Suspect]
     Active Substance: MORPHINE
     Indication: Postoperative analgesia
     Dosage: FREQUENCY: AS REQUIRED?DOSAGE FORM: NOT SPECIFIED
     Route: 058
  2. MORPHINE [Suspect]
     Active Substance: MORPHINE
     Indication: Leg amputation

REACTIONS (6)
  - Endotracheal intubation [Recovered/Resolved]
  - Hypotension [Recovered/Resolved]
  - Postrenal failure [Recovered/Resolved]
  - Stupor [Recovered/Resolved]
  - Urinary retention [Recovered/Resolved]
  - Vasopressive therapy [Recovered/Resolved]
